FAERS Safety Report 5732117-3 (Version None)
Quarter: 2008Q2

REPORT INFORMATION
  Report Type: 
  Country: None (occurrence: None)
  Receive Date: 20080508
  Receipt Date: 20080429
  Transmission Date: 20081010
  Serious: Yes (Other)
  Sender: FDA-Public Use
  Company Number: US-PFIZER INC-2007059207

PATIENT
  Sex: Female
  Weight: 62.1 kg

DRUGS (10)
  1. LIPITOR [Suspect]
     Indication: BLOOD CHOLESTEROL INCREASED
     Route: 048
  2. DEPAKOTE [Interacting]
     Indication: BIPOLAR DISORDER
     Route: 048
  3. TRILEPTAL [Interacting]
  4. FENTANYL-100 [Interacting]
     Indication: PAIN
  5. TRAMADOL HCL [Concomitant]
     Indication: PAIN
  6. ATENOLOL [Concomitant]
     Indication: HYPERTENSION
  7. RIZATRIPTAN BENZOATE [Concomitant]
     Indication: MIGRAINE
  8. TETRYZOLINE HYDROCHLORIDE [Concomitant]
     Indication: GLAUCOMA
     Dosage: FREQ:1 DROP IN EACH EYE AT HOUR OF SLEEP
  9. ALENDRONATE SODIUM [Concomitant]
     Indication: OSTEOARTHRITIS
     Dosage: FREQ:WEEKLY
  10. FENTANYL-100 [Concomitant]
     Route: 062

REACTIONS (3)
  - DRUG INTERACTION [None]
  - DRUG LEVEL DECREASED [None]
  - PAIN [None]
